FAERS Safety Report 17872733 (Version 3)
Quarter: 2020Q3

REPORT INFORMATION
  Report Type: Report from Study
  Country: US (occurrence: US)
  Receive Date: 20200608
  Receipt Date: 20200819
  Transmission Date: 20201103
  Serious: No
  Sender: FDA-Public Use
  Company Number: NVSC2020US158961

PATIENT
  Age: 30 Year
  Sex: Female

DRUGS (1)
  1. COSENTYX [Suspect]
     Active Substance: SECUKINUMAB
     Indication: PSORIATIC ARTHROPATHY
     Dosage: 300 MG, Q4W
     Route: 058
     Dates: start: 201910

REACTIONS (4)
  - Inappropriate schedule of product administration [Unknown]
  - Skin exfoliation [Unknown]
  - Pruritus [Unknown]
  - Blister [Not Recovered/Not Resolved]

NARRATIVE: CASE EVENT DATE: 202002
